FAERS Safety Report 4932697-1 (Version None)
Quarter: 2006Q1

REPORT INFORMATION
  Report Type: 
  Country: None (occurrence: None)
  Receive Date: 20060301
  Receipt Date: 20060217
  Transmission Date: 20060701
  Serious: Yes (Hospitalization)
  Sender: FDA-Public Use
  Company Number: KII-2006-0021007

PATIENT
  Age: 50 Year
  Sex: Male

DRUGS (5)
  1. OXYCODONE HCL [Suspect]
     Dosage: ORAL
     Route: 048
  2. BENZODIAZEPINE DERIVATIVES() [Suspect]
     Dosage: ORAL
     Route: 048
  3. ASPIRIN [Suspect]
  4. TEGRETOL [Suspect]
  5. TRICYCLIC ANTIDEPRESSANTS() [Suspect]

REACTIONS (8)
  - ABDOMINAL DISTENSION [None]
  - BLOOD CREATINE PHOSPHOKINASE INCREASED [None]
  - BLOOD PRESSURE DIASTOLIC INCREASED [None]
  - ELECTROCARDIOGRAM QT PROLONGED [None]
  - HEART RATE INCREASED [None]
  - LOSS OF CONSCIOUSNESS [None]
  - OEDEMA PERIPHERAL [None]
  - PANIC ATTACK [None]
